FAERS Safety Report 7450929-5 (Version None)
Quarter: 2011Q2

REPORT INFORMATION
  Report Type: 
  Country: None (occurrence: None)
  Receive Date: 20110502
  Receipt Date: 20110428
  Transmission Date: 20111010
  Serious: No
  Sender: FDA-Public Use
  Company Number: US-PFIZER INC-2011092192

PATIENT
  Sex: Male
  Weight: 74.83 kg

DRUGS (4)
  1. CELEBREX [Concomitant]
     Indication: ARTHRITIS
     Dosage: UNK
     Dates: start: 20030625
  2. VIAGRA [Suspect]
     Indication: ERECTILE DYSFUNCTION
     Dosage: 50 MG, AS NEEDED
     Route: 048
  3. PRILOSEC [Concomitant]
     Indication: HYPERCHLORHYDRIA
     Dosage: UNK
     Dates: start: 19980329
  4. VIAGRA [Suspect]
     Dosage: 100 MG, AS NEEDED

REACTIONS (1)
  - DRUG INEFFECTIVE [None]
